FAERS Safety Report 9365249 (Version 2)
Quarter: 2014Q1

REPORT INFORMATION
  Report Type: Spontaneous
  Country: US (occurrence: US)
  Receive Date: 20130625
  Receipt Date: 20140114
  Transmission Date: 20141002
  Serious: Yes (Hospitalization, Disabling, Other)
  Sender: FDA-Public Use
  Company Number: US-009507513-1306USA010257

PATIENT
  Sex: Female

DRUGS (2)
  1. NUVARING [Suspect]
     Indication: CONTRACEPTION
     Dosage: UNK
     Route: 067
     Dates: start: 2004, end: 200807
  2. NUVARING [Suspect]
     Dosage: UNK
     Route: 067
     Dates: start: 200901, end: 201009

REACTIONS (45)
  - Convulsion [Unknown]
  - Pulmonary embolism [Unknown]
  - Loss of consciousness [Recovered/Resolved]
  - Migraine [Not Recovered/Not Resolved]
  - Nausea [Unknown]
  - Insomnia [Unknown]
  - Depression [Unknown]
  - Fibromyalgia [Unknown]
  - Anxiety [Unknown]
  - Diastolic hypertension [Unknown]
  - Appendicectomy [Unknown]
  - Attention deficit/hyperactivity disorder [Unknown]
  - Constipation [Unknown]
  - Gastrooesophageal reflux disease [Unknown]
  - Skin disorder [Unknown]
  - Sinus operation [Unknown]
  - Adverse drug reaction [Unknown]
  - Motion sickness [Unknown]
  - Adverse drug reaction [Unknown]
  - Glucose tolerance impaired [Recovered/Resolved]
  - Urinary retention [Unknown]
  - Adverse drug reaction [Unknown]
  - Adverse drug reaction [Unknown]
  - Headache [Unknown]
  - Hormone level abnormal [Unknown]
  - Adverse drug reaction [Unknown]
  - Emotional distress [Unknown]
  - Fatigue [Unknown]
  - Dizziness [Unknown]
  - Adverse drug reaction [Unknown]
  - Chest discomfort [Unknown]
  - Dyspnoea [Unknown]
  - Weight increased [Unknown]
  - Menstruation delayed [Unknown]
  - Infectious mononucleosis [Unknown]
  - Intracranial pressure increased [Unknown]
  - Central venous catheterisation [Unknown]
  - Pneumonia [Unknown]
  - Gastritis erosive [Unknown]
  - Adverse drug reaction [Unknown]
  - Oesophagitis [Unknown]
  - Hyperlipidaemia [Unknown]
  - Peripheral vascular disorder [Unknown]
  - Dysmenorrhoea [Unknown]
  - Polycystic ovaries [Unknown]
